FAERS Safety Report 4571649-0 (Version None)
Quarter: 2005Q1

REPORT INFORMATION
  Report Type: 
  Country: None (occurrence: None)
  Receive Date: 20050203
  Receipt Date: 20050203
  Transmission Date: 20050727
  Serious: No
  Sender: FDA-Public Use
  Company Number: None

PATIENT
  Sex: Female
  Weight: 41.1413 kg

DRUGS (3)
  1. ADDERALL 20 [Suspect]
     Indication: ANXIETY
     Dosage: 20 MG AM , LUNCH, AND 4 PM ORALLY
     Route: 048
  2. ADDERALL 20 [Suspect]
     Indication: ATTENTION DEFICIT/HYPERACTIVITY DISORDER
     Dosage: 20 MG AM , LUNCH, AND 4 PM ORALLY
     Route: 048
  3. ADDERALL 20 [Suspect]
     Indication: COGNITIVE DISORDER
     Dosage: 20 MG AM , LUNCH, AND 4 PM ORALLY
     Route: 048

REACTIONS (2)
  - HEADACHE [None]
  - PHARMACEUTICAL PRODUCT COMPLAINT [None]
